FAERS Safety Report 23618699 (Version 1)
Quarter: 2024Q1

REPORT INFORMATION
  Report Type: Spontaneous
  Country: US (occurrence: US)
  Receive Date: 20240311
  Receipt Date: 20240311
  Transmission Date: 20240410
  Serious: No
  Sender: FDA-Public Use
  Company Number: US-KARYOPHARM-2024KPT000092

PATIENT

DRUGS (24)
  1. XPOVIO [Suspect]
     Active Substance: SELINEXOR
     Indication: Plasma cell myeloma
     Dosage: 100 MG, WEEKLY
     Route: 048
  2. AMLODIPINE BESYLATE [Concomitant]
     Active Substance: AMLODIPINE BESYLATE
  3. ATORVASTATIN CALCIUM [Concomitant]
     Active Substance: ATORVASTATIN CALCIUM
  4. BRIMONIDINE [BRIMONIDINE TARTRATE] [Concomitant]
  5. DEXAMETHASONE [Concomitant]
     Active Substance: DEXAMETHASONE
  6. DORZOLAMIDE HYDROCHLORIDE [Concomitant]
     Active Substance: DORZOLAMIDE HYDROCHLORIDE
  7. HYDROCHLOROTHIAZIDE [Concomitant]
     Active Substance: HYDROCHLOROTHIAZIDE
  8. ACETAMINOPHEN\HYDROCODONE [Concomitant]
     Active Substance: ACETAMINOPHEN\HYDROCODONE
  9. LATANOPROST [Concomitant]
     Active Substance: LATANOPROST
  10. MS CONTIN [Concomitant]
     Active Substance: MORPHINE SULFATE
  11. NINLARO [Concomitant]
     Active Substance: IXAZOMIB CITRATE
  12. GABAPENTIN [Concomitant]
     Active Substance: GABAPENTIN
  13. BENZONATATE [Concomitant]
     Active Substance: BENZONATATE
  14. BORTEZOMIB [Concomitant]
     Active Substance: BORTEZOMIB
  15. ERYTHROPOIETIN [Concomitant]
     Active Substance: ERYTHROPOIETIN
  16. LIDOCAINE [Concomitant]
     Active Substance: LIDOCAINE
  17. LINZESS [Concomitant]
     Active Substance: LINACLOTIDE
  18. ALLOPURINOL [Concomitant]
     Active Substance: ALLOPURINOL
  19. MORPHINE SULFATE [Concomitant]
     Active Substance: MORPHINE SULFATE
  20. ONDANSETRON [Concomitant]
     Active Substance: ONDANSETRON
  21. PROCHLORPERAZINE [Concomitant]
     Active Substance: PROCHLORPERAZINE
  22. BACLOFEN [Concomitant]
     Active Substance: BACLOFEN
  23. MEGESTROL [Concomitant]
     Active Substance: MEGESTROL
  24. REVLIMID [Concomitant]
     Active Substance: LENALIDOMIDE

REACTIONS (5)
  - Hiccups [Unknown]
  - Gingival pain [Unknown]
  - Fatigue [Unknown]
  - Decreased appetite [Unknown]
  - Weight decreased [Unknown]

NARRATIVE: CASE EVENT DATE: 20240101
